FAERS Safety Report 16986937 (Version 1)
Quarter: 2019Q4

REPORT INFORMATION
  Report Type: Report from Study
  Country: US (occurrence: US)
  Receive Date: 20191102
  Receipt Date: 20191102
  Transmission Date: 20200122
  Serious: Yes (Other)
  Sender: FDA-Public Use
  Company Number: US-TEVA-796170USA

PATIENT
  Sex: Male

DRUGS (1)
  1. METHOTREXATE. [Suspect]
     Active Substance: METHOTREXATE
     Indication: ACCIDENTAL EXPOSURE TO PRODUCT
     Dosage: 7.5MG
     Route: 048

REACTIONS (5)
  - Metabolic acidosis [Recovered/Resolved]
  - Accidental exposure to product [Recovered/Resolved]
  - Leukocytosis [Recovered/Resolved]
  - Toxicity to various agents [Recovered/Resolved]
  - Tachycardia [Recovered/Resolved]
